FAERS Safety Report 14294990 (Version 2)
Quarter: 2017Q4

REPORT INFORMATION
  Report Type: Spontaneous
  Country: US (occurrence: US)
  Receive Date: 20171218
  Receipt Date: 20171221
  Transmission Date: 20180321
  Serious: No
  Sender: FDA-Public Use
  Company Number: US-009507513-1712USA006921

PATIENT
  Age: 27 Year
  Sex: Female
  Weight: 112.93 kg

DRUGS (1)
  1. NEXPLANON [Suspect]
     Active Substance: ETONOGESTREL
     Dosage: 1 DF, EVERY 3 YEARS
     Route: 059
     Dates: start: 20161216

REACTIONS (4)
  - Pain in extremity [Unknown]
  - Paraesthesia [Unknown]
  - Device breakage [Unknown]
  - Limb discomfort [Unknown]

NARRATIVE: CASE EVENT DATE: 20171122
